FAERS Safety Report 5515977-0 (Version None)
Quarter: 2007Q4

REPORT INFORMATION
  Report Type: 
  Country: None (occurrence: None)
  Receive Date: 20071114
  Receipt Date: 20061103
  Transmission Date: 20080405
  Serious: No
  Sender: FDA-Public Use
  Company Number: A0626003A

PATIENT
  Age: 30 Year
  Sex: Male

DRUGS (2)
  1. COMMIT [Suspect]
  2. NICODERM CQ [Suspect]

REACTIONS (3)
  - DIZZINESS [None]
  - HYPOAESTHESIA ORAL [None]
  - NAUSEA [None]
